FAERS Safety Report 5347509-4 (Version None)
Quarter: 2007Q2

REPORT INFORMATION
  Report Type: 
  Country: None (occurrence: None)
  Receive Date: 20070604
  Receipt Date: 20070604
  Transmission Date: 20071010
  Serious: Yes (Hospitalization)
  Sender: FDA-Public Use
  Company Number: None

PATIENT
  Sex: Female
  Weight: 97.05 kg

DRUGS (2)
  1. CYCLOPHOSPHAMIDE [Suspect]
     Dosage: 1236 MG
  2. DOXORUBICIN HYDROCHLORIDE [Suspect]
     Dosage: 124 MG

REACTIONS (17)
  - ANAEMIA [None]
  - BACTERIAL INFECTION [None]
  - BLOOD CULTURE POSITIVE [None]
  - BREAST ABSCESS [None]
  - BREAST CELLULITIS [None]
  - BREAST INDURATION [None]
  - HAEMATOMA [None]
  - HAEMOGLOBIN DECREASED [None]
  - MALAISE [None]
  - NAUSEA [None]
  - NEUTROPHIL COUNT DECREASED [None]
  - PLATELET COUNT DECREASED [None]
  - PYREXIA [None]
  - RASH ERYTHEMATOUS [None]
  - SEROMA [None]
  - VOMITING [None]
  - WHITE BLOOD CELL COUNT DECREASED [None]
